FAERS Safety Report 23916378 (Version 4)
Quarter: 2025Q2

REPORT INFORMATION
  Report Type: Spontaneous
  Country: US (occurrence: US)
  Receive Date: 20240529
  Receipt Date: 20250522
  Transmission Date: 20250716
  Serious: No
  Sender: SANOFI AVENTIS
  Company Number: US-SA-SAC20240527000115

PATIENT
  Age: 55 Year
  Sex: Female
  Weight: 60 kg

DRUGS (13)
  1. DUPIXENT [Suspect]
     Active Substance: DUPILUMAB
     Indication: Dermatitis atopic
     Dosage: 300 MG, QOW
     Route: 058
  2. DUPIXENT [Suspect]
     Active Substance: DUPILUMAB
     Indication: Plasma cell myeloma in remission
  3. GRANIX [Concomitant]
     Active Substance: TBO-FILGRASTIM
  4. DOXYCYCLINE [Concomitant]
     Active Substance: DOXYCYCLINE
  5. SUMATRIPTAN SUCCINATE [Concomitant]
     Active Substance: SUMATRIPTAN SUCCINATE
  6. PREDNISOLONE ACETATE [Concomitant]
     Active Substance: PREDNISOLONE ACETATE
  7. XARELTO [Concomitant]
     Active Substance: RIVAROXABAN
  8. ESTRADIOL [Concomitant]
     Active Substance: ESTRADIOL
  9. ACYCLOVIR [Concomitant]
     Active Substance: ACYCLOVIR
  10. OMEPRAZOLE [Concomitant]
     Active Substance: OMEPRAZOLE
  11. DOXYCYCLINE HYCLATE [Concomitant]
     Active Substance: DOXYCYCLINE HYCLATE
  12. POMALYST [Concomitant]
     Active Substance: POMALIDOMIDE
  13. METHYLPREDNISOLONE [Concomitant]
     Active Substance: METHYLPREDNISOLONE

REACTIONS (4)
  - Bronchitis [Recovering/Resolving]
  - Illness [Recovering/Resolving]
  - Migraine [Recovered/Resolved]
  - Product use in unapproved indication [Unknown]

NARRATIVE: CASE EVENT DATE: 20240101
